FAERS Safety Report 9305222 (Version 1)
Quarter: 2013Q2

REPORT INFORMATION
  Report Type: Spontaneous
  Country: FR (occurrence: FR)
  Receive Date: 20130523
  Receipt Date: 20130523
  Transmission Date: 20140414
  Serious: Yes (Hospitalization)
  Sender: FDA-Public Use
  Company Number: FR-UCBSA-086338

PATIENT
  Age: 95 Year
  Sex: Female

DRUGS (1)
  1. KEPPRA [Suspect]
     Indication: EPILEPSY
     Route: 048
     Dates: start: 201207, end: 201304

REACTIONS (3)
  - Diarrhoea [Recovering/Resolving]
  - Malnutrition [Unknown]
  - Weight decreased [Unknown]
